FAERS Safety Report 5130597-8 (Version None)
Quarter: 2006Q3

REPORT INFORMATION
  Report Type: 
  Country: None (occurrence: None)
  Receive Date: 20060829
  Receipt Date: 20060512
  Transmission Date: 20061208
  Serious: No
  Sender: FDA-Public Use
  Company Number: PHEH2006US05849

PATIENT
  Age: 23 Year
  Sex: Male
  Weight: 34.2 kg

DRUGS (1)
  1. EXJADE [Suspect]
     Indication: SICKLE CELL ANAEMIA
     Dosage: 750 MG, QD
     Dates: start: 20060201

REACTIONS (2)
  - HALLUCINATION [None]
  - NIGHTMARE [None]
